FAERS Safety Report 4966269-X (Version None)
Quarter: 2006Q2

REPORT INFORMATION
  Report Type: 
  Country: None (occurrence: None)
  Receive Date: 20060407
  Receipt Date: 20051122
  Transmission Date: 20061013
  Serious: Yes (Death, Other)
  Sender: FDA-Public Use
  Company Number: US-MERCK-0511USA04078

PATIENT
  Age: 86 Year
  Sex: Male
  Weight: 82 kg

DRUGS (4)
  1. VIOXX [Suspect]
     Indication: MONARTHRITIS
     Route: 048
     Dates: start: 20030627, end: 20031124
  2. ASPIRIN [Concomitant]
     Route: 065
     Dates: start: 20030711
  3. LISINOPRIL [Concomitant]
     Route: 065
  4. HYDROCHLOROTHIAZIDE [Concomitant]
     Route: 065

REACTIONS (6)
  - BLOOD CHOLESTEROL INCREASED [None]
  - CEREBROVASCULAR ACCIDENT [None]
  - DEATH [None]
  - HEART RATE IRREGULAR [None]
  - LOSS OF CONTROL OF LEGS [None]
  - MYOCARDIAL INFARCTION [None]
